FAERS Safety Report 12867637 (Version 1)
Quarter: 2016Q4

REPORT INFORMATION
  Report Type: Report from Study
  Country: US (occurrence: US)
  Receive Date: 20161020
  Receipt Date: 20161020
  Transmission Date: 20170207
  Serious: Yes (Other)
  Sender: FDA-Public Use
  Company Number: US-ACTELION-A-NJ2016-137556

PATIENT
  Age: 63 Year
  Sex: Female

DRUGS (5)
  1. AMLODIPINE [Concomitant]
     Active Substance: AMLODIPINE BESYLATE
  2. WARFARIN [Concomitant]
     Active Substance: WARFARIN
  3. TYVASO [Concomitant]
     Active Substance: TREPROSTINIL
     Dosage: 10 MG, QD
     Route: 048
     Dates: start: 20150715, end: 201606
  4. ADEMPAS [Concomitant]
     Active Substance: RIOCIGUAT
  5. OPSUMIT [Suspect]
     Active Substance: MACITENTAN
     Indication: PULMONARY ARTERIAL HYPERTENSION
     Dosage: 10 MG, QD
     Route: 048
     Dates: start: 20150715

REACTIONS (5)
  - International normalised ratio increased [Unknown]
  - Cough [Unknown]
  - Fatigue [Unknown]
  - Malaise [Unknown]
  - Treatment noncompliance [Unknown]

NARRATIVE: CASE EVENT DATE: 201610
